FAERS Safety Report 9626271 (Version 2)
Quarter: 2013Q4

REPORT INFORMATION
  Report Type: Spontaneous
  Country: US (occurrence: None)
  Receive Date: 20131003
  Receipt Date: 20131011
  Transmission Date: 20140711
  Serious: Yes (Other)
  Sender: FDA-Public Use
  Company Number: 2013037996

PATIENT
  Age: 72 Year
  Sex: Female

DRUGS (1)
  1. PRIVIGEN [Suspect]
     Indication: LICHEN MYXOEDEMATOSUS
     Dosage: 2 MG/KG, 5 INFUSIONS NOT GIVEN CONSECUTIVELY
     Route: 042
     Dates: start: 20130819, end: 20130827

REACTIONS (3)
  - Off label use [None]
  - Fatigue [None]
  - Haemolytic anaemia [None]
